FAERS Safety Report 23963990 (Version 6)
Quarter: 2024Q4

REPORT INFORMATION
  Report Type: Report from Study
  Country: CA (occurrence: CA)
  Receive Date: 20240611
  Receipt Date: 20241105
  Transmission Date: 20250115
  Serious: Yes (Other)
  Sender: HLS THERAPEUTICS
  Company Number: CA-HLS-202401484

PATIENT
  Age: 64 Year
  Sex: Female

DRUGS (23)
  1. CLOZARIL [Suspect]
     Active Substance: CLOZAPINE
     Indication: Product used for unknown indication
     Route: 048
     Dates: start: 20181003, end: 20240605
  2. CLOZARIL [Suspect]
     Active Substance: CLOZAPINE
     Indication: Product used for unknown indication
     Dosage: 100 MG TABLET 200 MG, DAILY, AT BEDTIME.?11 TO 12-JUN-2024
     Route: 048
  3. CLOZARIL [Suspect]
     Active Substance: CLOZAPINE
     Indication: Product used for unknown indication
     Dosage: 25 MG TABLET 50 MG, 2 TIMES PER DAY, WITH LUNCH AND AT BEDTIME??13 TO 14-JUN-2024
     Route: 048
  4. CLOZARIL [Suspect]
     Active Substance: CLOZAPINE
     Indication: Product used for unknown indication
     Dosage: RE-STARTED ON DRUG ON THE EVENING OF 10-JUN-2024.
     Route: 065
  5. Arachitol-6L [Concomitant]
     Indication: Product used for unknown indication
     Dosage: 1,000 UNITS
     Route: 065
  6. EFFEXOR [Concomitant]
     Active Substance: VENLAFAXINE HYDROCHLORIDE
     Indication: Product used for unknown indication
     Dosage: LONG ACTING 75 MG CAPSULE 225 MG, DAILY
     Route: 048
  7. SPIRIVA RESPIMAT [Concomitant]
     Active Substance: TIOTROPIUM BROMIDE
     Indication: Product used for unknown indication
     Dosage: 2.5 MCG/ACTUATION INHALER 2 PUFF, INHALATION, DAILY
     Route: 065
  8. SENOKOT [Concomitant]
     Active Substance: SENNOSIDES
     Indication: Product used for unknown indication
     Dosage: 8.6 MG 2 TABLET, DAILY, AT BEDTIME AS NEEDED
     Route: 048
  9. ALBUTEROL [Concomitant]
     Active Substance: ALBUTEROL
     Indication: Product used for unknown indication
     Dosage: 100 MCG/ACTUATION INHALER (EXPIRED) 2 PUFF, INHALATION, EVERY 6 HOURS
     Route: 065
  10. ALBUTEROL [Concomitant]
     Active Substance: ALBUTEROL
     Indication: Product used for unknown indication
     Dosage: 100 MCG/ACTUATION INHALER 2 PUFF, INHALATION, 4 TIMES PER DAY, AS NEEDED
     Route: 065
  11. CRESTOR [Concomitant]
     Active Substance: ROSUVASTATIN CALCIUM
     Indication: Product used for unknown indication
     Dosage: 10MG, TAKE?1?TABLET?ONCE?DAILY?AT?21:00?
     Route: 065
  12. CRESTOR [Concomitant]
     Active Substance: ROSUVASTATIN CALCIUM
     Indication: Product used for unknown indication
     Dosage: 5 MG, DAILY, AT BEDTIME
     Route: 048
  13. REMERON [Concomitant]
     Active Substance: MIRTAZAPINE
     Indication: Product used for unknown indication
     Dosage: 15 MG, DAILY, AT BEDTIME
     Route: 048
  14. GLUCOPHAGE [Concomitant]
     Active Substance: METFORMIN HYDROCHLORIDE
     Indication: Product used for unknown indication
     Dosage: 500 MG TABLET 250 MG, 2 TIMES PER DAY, WITH BREAKFAST AND SUPPER
     Route: 048
  15. ATIVAN [Concomitant]
     Active Substance: LORAZEPAM
     Indication: Product used for unknown indication
     Dosage: DAILY, WITH SUPPER
     Route: 060
  16. LASIX [Concomitant]
     Active Substance: FUROSEMIDE
     Indication: Product used for unknown indication
     Dosage: 20 MG, DAILY
     Route: 048
  17. ROLAIDS [Concomitant]
     Active Substance: CALCIUM CARBONATE\MAGNESIUM HYDROXIDE
     Indication: Product used for unknown indication
     Dosage: 500 MG , DAILY
     Route: 048
  18. SYMBICORT [Concomitant]
     Active Substance: BUDESONIDE\FORMOTEROL FUMARATE DIHYDRATE
     Indication: Product used for unknown indication
     Dosage: 200 MCG-6 MCG/ACTUATION INHALER (EXPIRED) 2 PUFF, INHALATION, 2 TIMES PER DAY
     Route: 065
  19. BISOPROLOL FUMARATE [Concomitant]
     Active Substance: BISOPROLOL FUMARATE
     Indication: Product used for unknown indication
     Dosage: 5 MG TABLET 2.5 MG, DAILY
     Route: 048
  20. ELIQUIS [Concomitant]
     Active Substance: APIXABAN
     Indication: Product used for unknown indication
     Dosage: 2 TIMES PER DAY, WITH BREAKFAST AND SUPPER.
     Route: 048
  21. Hyderm [Concomitant]
     Indication: Product used for unknown indication
     Dosage: 100?G?FOR?10?DAYS??APPLY?TOPICALLY?TO?AFFECTED?AREA?(?PERI-AREA)?TWICE?DAILY?AT?08:00?AND?21:00??NUR
     Route: 065
  22. EDOXABAN TOSYLATE [Concomitant]
     Active Substance: EDOXABAN TOSYLATE
     Indication: Product used for unknown indication
     Dosage: 60MG, TAKE?1?TABLET?ONCE?DAILY?AT?08:00
     Route: 065
  23. VITAMIN B12 [Concomitant]
     Active Substance: CYANOCOBALAMIN
     Indication: Product used for unknown indication
     Dosage: 7?TABLET(S)?FOR?7?DAYS?TAKE?1?TABLET?ONCE?DAILY?AT?08:00
     Route: 065
     Dates: start: 20241025

REACTIONS (14)
  - Asthma [Unknown]
  - Therapy interrupted [Not Recovered/Not Resolved]
  - Myelopathy [Unknown]
  - Diabetes mellitus [Unknown]
  - Fall [Unknown]
  - Asthenia [Unknown]
  - Bronchial hyperreactivity [Unknown]
  - Thrombosis [Unknown]
  - Neutropenia [Unknown]
  - Platelet count decreased [Unknown]
  - Pulmonary embolism [Unknown]
  - Chronic obstructive pulmonary disease [Unknown]
  - Respiratory failure [Unknown]
  - White blood cell count decreased [Unknown]

NARRATIVE: CASE EVENT DATE: 20181023
